FAERS Safety Report 14625238 (Version 2)
Quarter: 2018Q1

REPORT INFORMATION
  Report Type: Spontaneous
  Country: US (occurrence: US)
  Receive Date: 20180312
  Receipt Date: 20180322
  Transmission Date: 20180509
  Serious: Yes (Hospitalization)
  Sender: FDA-Public Use
  Company Number: US-GLENMARK PHARMACEUTICALS-2018GMK033126

PATIENT

DRUGS (1)
  1. VERAPAMIL [Suspect]
     Active Substance: VERAPAMIL HYDROCHLORIDE
     Indication: CEREBRAL VASOCONSTRICTION
     Dosage: 10 MG, UNK
     Route: 013

REACTIONS (4)
  - Cerebral hyperperfusion syndrome [Recovered/Resolved]
  - Cerebral artery occlusion [Recovered/Resolved]
  - Intracranial pressure increased [Recovered/Resolved]
  - Blood brain barrier defect [Recovered/Resolved]
